FAERS Safety Report 15557176 (Version 3)
Quarter: 2019Q1

REPORT INFORMATION
  Report Type: Report from Study
  Country: US (occurrence: US)
  Receive Date: 20181026
  Receipt Date: 20190125
  Transmission Date: 20190417
  Serious: Yes (Hospitalization)
  Sender: FDA-Public Use
  Company Number: US-ACTELION-A-NJ2018-180401

PATIENT
  Age: 36 Year
  Sex: Female
  Weight: 60.77 kg

DRUGS (5)
  1. VELETRI [Suspect]
     Active Substance: EPOPROSTENOL
     Indication: PULMONARY ARTERIAL HYPERTENSION
     Dosage: 30 NG, PER MIN
     Route: 042
  2. REVATIO [Concomitant]
     Active Substance: SILDENAFIL CITRATE
  3. REMODULIN [Suspect]
     Active Substance: TREPROSTINIL
     Indication: PULMONARY ARTERIAL HYPERTENSION
     Dosage: 130 NG/KG, PER MIN
     Route: 058
     Dates: start: 20140811
  4. OPSUMIT [Suspect]
     Active Substance: MACITENTAN
     Indication: PULMONARY ARTERIAL HYPERTENSION
     Dosage: 10 MG, QD
     Route: 048
     Dates: start: 20160617
  5. VELETRI [Suspect]
     Active Substance: EPOPROSTENOL
     Dosage: 40 NG/KG, PER MIN
     Route: 042

REACTIONS (7)
  - Upper respiratory tract infection [Unknown]
  - Emergency care [Unknown]
  - Myalgia [Unknown]
  - Neuralgia [Unknown]
  - Rash [Unknown]
  - Therapy change [Unknown]
  - Arthralgia [Unknown]

NARRATIVE: CASE EVENT DATE: 20181217
